FAERS Safety Report 5035047-8 (Version None)
Quarter: 2006Q2

REPORT INFORMATION
  Report Type: 
  Country: None (occurrence: None)
  Receive Date: 20060621
  Receipt Date: 20060608
  Transmission Date: 20061013
  Serious: Yes (Other)
  Sender: FDA-Public Use
  Company Number: B0427457A

PATIENT
  Sex: Female

DRUGS (4)
  1. ALKERAN [Suspect]
     Indication: STEM CELL TRANSPLANT
     Dosage: 150 MG/M2 /
  2. FLUDARABINE PHOSPHATE (FORMULATION UNKOWN) (FLUDARABINE PHOSPHATE) [Suspect]
     Indication: STEM CELL TRANSPLANT
     Dosage: 30 MG/M2 / PER DAY / INTRAVENOUS
     Route: 042
  3. CANCER CHEMOTHERAPY [Concomitant]
  4. CYCLOSPORINE [Concomitant]

REACTIONS (4)
  - GRAFT VERSUS HOST DISEASE [None]
  - GRAFT VERSUS HOST DISEASE IN INTESTINE [None]
  - GRAFT VERSUS HOST DISEASE IN SKIN [None]
  - MUCOSAL INFLAMMATION [None]
